FAERS Safety Report 6622297-X (Version None)
Quarter: 2010Q1

REPORT INFORMATION
  Report Type: 
  Country: None (occurrence: None)
  Receive Date: 20100310
  Receipt Date: 20100223
  Transmission Date: 20100710
  Serious: Yes (Hospitalization, Other)
  Sender: FDA-Public Use
  Company Number: US-ELI_LILLY_AND_COMPANY-US201003000267

PATIENT
  Sex: Female

DRUGS (4)
  1. FORTEO [Suspect]
     Indication: OSTEOPOROSIS
     Dosage: 20 UG, DAILY (1/D)
     Dates: start: 20081201
  2. HYDROCODONE [Concomitant]
     Indication: PAIN
     Dosage: UNK, UNKNOWN
  3. ELAVIL [Concomitant]
     Indication: SLEEP DISORDER
     Dosage: UNK, UNKNOWN
  4. VITAMINS NOS [Concomitant]
     Dosage: UNK, UNKNOWN

REACTIONS (7)
  - ARTHRALGIA [None]
  - FALL [None]
  - FEMUR FRACTURE [None]
  - HIP FRACTURE [None]
  - INCONTINENCE [None]
  - KIDNEY INFECTION [None]
  - NAUSEA [None]
